FAERS Safety Report 12342023 (Version 5)
Quarter: 2016Q3

REPORT INFORMATION
  Report Type: Spontaneous
  Country: US (occurrence: US)
  Receive Date: 20160506
  Receipt Date: 20160906
  Transmission Date: 20161109
  Serious: Yes (Other)
  Sender: FDA-Public Use
  Company Number: US-009507513-1605USA003646

PATIENT

DRUGS (2)
  1. HEPARIN [Suspect]
     Active Substance: HEPARIN SODIUM
     Indication: THROMBOSIS IN DEVICE
     Dosage: 5 +/- 4 DAYS ALONE, PRIOR TO ADDITION OF EPTIFIBATIDE
     Route: 065
  2. INTEGRILIN [Suspect]
     Active Substance: EPTIFIBATIDE
     Indication: THROMBOSIS IN DEVICE
     Dosage: TYPICALLY STARTED AT 0.5 MCG/KG/MIN AND TITRATED UP TO A MAXIMUM OF 2 MCG/KG/MIN
     Route: 065

REACTIONS (1)
  - Treatment failure [Unknown]
